FAERS Safety Report 5943292-X (Version None)
Quarter: 2008Q4

REPORT INFORMATION
  Report Type: 
  Country: None (occurrence: None)
  Receive Date: 20081106
  Receipt Date: 20081028
  Transmission Date: 20090506
  Serious: Yes (Other)
  Sender: FDA-Public Use
  Company Number: PHHY2008GB25065

PATIENT
  Sex: Male

DRUGS (10)
  1. CLOZARIL [Suspect]
     Indication: SCHIZOPHRENIA
     Dosage: 250 MG  DAILY
  2. CYPROHEPTADINE HCL [Concomitant]
     Dosage: 600 MG DAILY
     Route: 048
  3. OMEPRAZOLE [Concomitant]
     Dosage: 20 MG DAILY
     Route: 048
  4. FLUOXETINE [Concomitant]
     Dosage: 60 MG DAILY
     Route: 048
  5. METFORMIN HCL [Concomitant]
     Dosage: 3000 MG DAILY
     Route: 048
  6. GLICLAZIDE [Concomitant]
     Dosage: 80 MG DAILY
     Route: 048
  7. FERROUS SULFATE TAB [Concomitant]
     Dosage: 600 MG DAILY
     Route: 048
  8. BUCCANLEN [Concomitant]
     Dosage: 6 MG DAILY
     Route: 048
  9. SIMVASTATIN [Concomitant]
     Dosage: 20 MG DAILY
     Route: 048
  10. PERINDOPRIL [Concomitant]
     Dosage: 2 MG DAILY
     Route: 048

REACTIONS (4)
  - BLOOD CREATININE INCREASED [None]
  - DIABETES MELLITUS [None]
  - GLOMERULAR FILTRATION RATE DECREASED [None]
  - RENAL FAILURE [None]
